FAERS Safety Report 8488362-X (Version None)
Quarter: 2012Q3

REPORT INFORMATION
  Report Type: 
  Country: None (occurrence: None)
  Receive Date: 20120705
  Receipt Date: 20120625
  Transmission Date: 20120928
  Serious: Yes (Other)
  Sender: FDA-Public Use
  Company Number: JP-ELI_LILLY_AND_COMPANY-JP201203007150

PATIENT
  Age: 75 Year
  Sex: Female

DRUGS (1)
  1. FORTEO [Suspect]
     Dosage: UNK
     Route: 058
     Dates: start: 20110609

REACTIONS (8)
  - BONE DENSITY DECREASED [None]
  - INJECTION SITE HAEMATOMA [None]
  - BLOOD TEST ABNORMAL [None]
  - MUSCLE SPASMS [None]
  - DRUG INEFFECTIVE [None]
  - STERNAL FRACTURE [None]
  - FOOT FRACTURE [None]
  - HEADACHE [None]
